FAERS Safety Report 8269915-0 (Version None)
Quarter: 2012Q2

REPORT INFORMATION
  Report Type: 
  Country: None (occurrence: None)
  Receive Date: 20120405
  Receipt Date: 20120326
  Transmission Date: 20120825
  Serious: Yes (Hospitalization)
  Sender: FDA-Public Use
  Company Number: JPI-P-020551

PATIENT
  Age: 58 Year
  Sex: Male

DRUGS (2)
  1. XYREM [Suspect]
     Indication: NARCOLEPSY
     Dosage: (3 GM FIRST DOSE/4.5 GM SECOND DOSE),ORAL ; (TITRATING DOSE),ORAL ; 9 GM (4.5 GM,2 IN 1 D),ORAL
     Route: 048
     Dates: start: 20080520
  2. XYREM [Suspect]
     Indication: NARCOLEPSY
     Dosage: (3 GM FIRST DOSE/4.5 GM SECOND DOSE),ORAL ; (TITRATING DOSE),ORAL ; 9 GM (4.5 GM,2 IN 1 D),ORAL
     Route: 048
     Dates: start: 20081004

REACTIONS (1)
  - HAEMOGLOBIN DECREASED [None]
